FAERS Safety Report 5851065-1 (Version None)
Quarter: 2008Q3

REPORT INFORMATION
  Report Type: 
  Country: None (occurrence: None)
  Receive Date: 20080818
  Receipt Date: 20080731
  Transmission Date: 20090109
  Serious: Yes (Death, Hospitalization)
  Sender: FDA-Public Use
  Company Number: 8035821

PATIENT
  Sex: Female

DRUGS (2)
  1. PREDNISOLONE [Suspect]
     Indication: STEROID THERAPY
     Dosage: 1 MG/KG; PO
     Route: 048
     Dates: start: 20060101
  2. METHYLPREDNISOLONE 16MG TAB [Concomitant]

REACTIONS (6)
  - CYTOMEGALOVIRUS INFECTION [None]
  - GASTRITIS EROSIVE [None]
  - ILEAL ULCER [None]
  - MULTI-ORGAN FAILURE [None]
  - PERITONITIS [None]
  - SMALL INTESTINAL PERFORATION [None]
